FAERS Safety Report 20459693 (Version 2)
Quarter: 2022Q1

REPORT INFORMATION
  Report Type: Report from Study
  Country: FR (occurrence: None)
  Receive Date: 20220211
  Receipt Date: 20220217
  Transmission Date: 20220423
  Serious: Yes (Hospitalization, Other)
  Sender: FDA-Public Use
  Company Number: FR-ROCHE-2903357

PATIENT
  Age: 53 Year
  Sex: Male
  Weight: 81 kg

DRUGS (2)
  1. RITUXIMAB [Suspect]
     Active Substance: RITUXIMAB
     Indication: Mantle cell lymphoma
     Dosage: ON 11/MAY/2021, HE RECEIVED MOST RECENT DOSE OF RITUXIMAB PRIOR TO ONSET OF SAE.
     Route: 058
     Dates: start: 20191121
  2. LENALIDOMIDE [Suspect]
     Active Substance: LENALIDOMIDE
     Indication: Mantle cell lymphoma
     Dosage: ON 18/JUN/2021, SHE RECEIVED MOST RECENT DOSE OF LENALIDOMIDE PRIOR TO ONSET OF SAE.
     Route: 065
     Dates: start: 20191120

REACTIONS (2)
  - Diarrhoea [Recovered/Resolved]
  - Hypokalaemia [Recovered/Resolved with Sequelae]

NARRATIVE: CASE EVENT DATE: 20210619
